FAERS Safety Report 20837871 (Version 1)
Quarter: 2022Q2

REPORT INFORMATION
  Report Type: Spontaneous
  Country: US (occurrence: US)
  Receive Date: 20220517
  Receipt Date: 20220517
  Transmission Date: 20220720
  Serious: No
  Sender: FDA-Public Use
  Company Number: US-ALLERGAN-2122676US

PATIENT
  Sex: Female
  Weight: 56.689 kg

DRUGS (1)
  1. KYBELLA [Suspect]
     Active Substance: DEOXYCHOLIC ACID
     Indication: Fat tissue increased
     Dosage: 12 UNITS, SINGLE
     Route: 058

REACTIONS (2)
  - Condition aggravated [Unknown]
  - Lymphadenopathy [Unknown]
